FAERS Safety Report 9922742 (Version 1)
Quarter: 2014Q1

REPORT INFORMATION
  Report Type: Spontaneous
  Country: US (occurrence: US)
  Receive Date: 20140225
  Receipt Date: 20140225
  Transmission Date: 20141002
  Serious: No
  Sender: FDA-Public Use
  Company Number: US-BAYER-2014-027572

PATIENT
  Sex: Male

DRUGS (1)
  1. ADEMPAS [Suspect]
     Dosage: 3 MG FOR 2 DOSES

REACTIONS (1)
  - Medication error [None]
